FAERS Safety Report 9011693 (Version 3)
Quarter: 2013Q1

REPORT INFORMATION
  Report Type: Spontaneous
  Country: US (occurrence: US)
  Receive Date: 20130102
  Receipt Date: 20130114
  Transmission Date: 20140127
  Serious: Yes (Life-Threatening)
  Sender: FDA-Public Use
  Company Number: PHEH2012US025530

PATIENT
  Sex: Male

DRUGS (9)
  1. DIOVAN HCT [Suspect]
     Dosage: 1 DF(160 MG VALS/12.5 MG HCT) UNK
  2. PERCOCET [Concomitant]
  3. HYOSCYAMINE [Concomitant]
  4. TRAZODONE [Concomitant]
  5. TEMAZEPAM [Concomitant]
  6. CARISOPRODOL [Concomitant]
  7. DIAZEPAM [Concomitant]
  8. LEVOTHYROXINE [Concomitant]
  9. TERAZOSIN [Concomitant]

REACTIONS (6)
  - Functional gastrointestinal disorder [Unknown]
  - Weight increased [Unknown]
  - Gastric disorder [Unknown]
  - Feeling abnormal [Unknown]
  - Diarrhoea [Unknown]
  - Blood pressure increased [Unknown]
